FAERS Safety Report 5788493-9 (Version None)
Quarter: 2008Q2

REPORT INFORMATION
  Report Type: 
  Country: None (occurrence: None)
  Receive Date: 20080625
  Receipt Date: 20080625
  Transmission Date: 20081010
  Serious: Yes (Other)
  Sender: FDA-Public Use
  Company Number: None

PATIENT
  Sex: Female

DRUGS (4)
  1. CYMBALTA [Suspect]
     Indication: HYPOAESTHESIA
     Dosage: 30MG 1 DAY;  60 MG 1 DAY
     Dates: start: 20070801, end: 20071201
  2. CYMBALTA [Suspect]
     Indication: NEURALGIA
     Dosage: 30MG 1 DAY;  60 MG 1 DAY
     Dates: start: 20070801, end: 20071201
  3. CYMBALTA [Suspect]
     Indication: HYPOAESTHESIA
     Dosage: 30MG 1 DAY;  60 MG 1 DAY
     Dates: start: 20071201, end: 20080101
  4. CYMBALTA [Suspect]
     Indication: NEURALGIA
     Dosage: 30MG 1 DAY;  60 MG 1 DAY
     Dates: start: 20071201, end: 20080101

REACTIONS (14)
  - AMNESIA [None]
  - ARTHRALGIA [None]
  - BLOOD PRESSURE INCREASED [None]
  - DIZZINESS [None]
  - DYSPHAGIA [None]
  - ERYTHEMA [None]
  - FALL [None]
  - GASTROOESOPHAGEAL REFLUX DISEASE [None]
  - HYPERHIDROSIS [None]
  - JOINT INJURY [None]
  - LOSS OF CONSCIOUSNESS [None]
  - NAUSEA [None]
  - NIGHTMARE [None]
  - VOMITING [None]
